FAERS Safety Report 5601448-X (Version None)
Quarter: 2008Q1

REPORT INFORMATION
  Report Type: 
  Country: None (occurrence: None)
  Receive Date: 20080124
  Receipt Date: 20080121
  Transmission Date: 20080703
  Serious: Yes (Death, Other)
  Sender: FDA-Public Use
  Company Number: PHEH2007US16192

PATIENT
  Age: 81 Year
  Sex: Male
  Weight: 65.306 kg

DRUGS (7)
  1. EXJADE [Suspect]
     Indication: IRON OVERLOAD
     Dosage: 1000 MG, QD
     Route: 048
     Dates: start: 20070604, end: 20071228
  2. ARANESP [Concomitant]
     Indication: MYELODYSPLASTIC SYNDROME
     Dosage: 0.3 MG, Q1-2 WEEKS
     Route: 058
     Dates: start: 20060822, end: 20071224
  3. NEULASTA [Concomitant]
     Indication: MYELODYSPLASTIC SYNDROME
     Dosage: 6 MG, QMO
     Route: 058
     Dates: start: 20060921, end: 20071203
  4. VIDAZA [Concomitant]
     Dosage: 0.25 MG, 5X/WK / MO
     Route: 058
     Dates: start: 20070212, end: 20071227
  5. RED BLOOD CELLS [Concomitant]
     Dosage: UNK, PRN
     Route: 042
     Dates: start: 20070219, end: 20071228
  6. PROCRIT [Concomitant]
     Dates: start: 20070212, end: 20071227
  7. NEUPOGEN [Concomitant]
     Dates: start: 20050919, end: 20071224

REACTIONS (4)
  - FATIGUE [None]
  - INJECTION SITE PAIN [None]
  - MYELODYSPLASTIC SYNDROME [None]
  - OSTEOARTHRITIS [None]
